FAERS Safety Report 6178873-4 (Version None)
Quarter: 2009Q2

REPORT INFORMATION
  Report Type: 
  Country: None (occurrence: None)
  Receive Date: 20090505
  Receipt Date: 20090424
  Transmission Date: 20091009
  Serious: Yes (Hospitalization, Other)
  Sender: FDA-Public Use
  Company Number: US-BAXTER-2009BH004471

PATIENT
  Age: 60 Year
  Sex: Male

DRUGS (3)
  1. TISSEEL VH/SD KIT LYOPHILIZED [Suspect]
     Indication: WOUND CLOSURE
     Route: 061
     Dates: start: 20090313, end: 20090313
  2. BLOOD CELLS, PACKED HUMAN [Concomitant]
     Indication: TRANSFUSION
     Route: 042
     Dates: start: 20090313, end: 20090313
  3. CELL SAVER [Concomitant]
     Indication: TRANSFUSION
     Dates: start: 20090313, end: 20090313

REACTIONS (8)
  - ABDOMINAL PAIN [None]
  - BACTERIAL SEPSIS [None]
  - DISSEMINATED INTRAVASCULAR COAGULATION [None]
  - MENTAL STATUS CHANGES POSTOPERATIVE [None]
  - PNEUMONIA KLEBSIELLA [None]
  - PYREXIA [None]
  - SEPTIC SHOCK [None]
  - WHITE BLOOD CELL COUNT INCREASED [None]
